FAERS Safety Report 24559103 (Version 1)
Quarter: 2024Q4

REPORT INFORMATION
  Report Type: Report from Study
  Country: CA (occurrence: CA)
  Receive Date: 20241029
  Receipt Date: 20241029
  Transmission Date: 20250115
  Serious: Yes (Other)
  Sender: ACCORD
  Company Number: None

PATIENT
  Sex: Female

DRUGS (3)
  1. LEUPROLIDE ACETATE [Suspect]
     Active Substance: LEUPROLIDE ACETATE
     Indication: Abnormal uterine bleeding
     Dosage: 1 EVERY 3 MONTHS
     Route: 030
  2. PROVERA [Concomitant]
     Active Substance: MEDROXYPROGESTERONE ACETATE
     Indication: Hormone level abnormal
     Dosage: 1 EVERY 1 DAYS
     Route: 048
  3. HYDROMORPHONE HCL [Concomitant]
     Active Substance: HYDROMORPHONE HYDROCHLORIDE
     Indication: Product used for unknown indication
     Route: 065

REACTIONS (7)
  - Drug ineffective [Recovered/Resolved]
  - Drug intolerance [Recovered/Resolved]
  - Dysmenorrhoea [Recovered/Resolved]
  - Haemorrhage [Recovered/Resolved]
  - Mental impairment [Recovered/Resolved]
  - Unevaluable event [Recovered/Resolved]
  - Off label use [Unknown]
